FAERS Safety Report 7962041-7 (Version None)
Quarter: 2011Q4

REPORT INFORMATION
  Report Type: 
  Country: None (occurrence: None)
  Receive Date: 20111207
  Receipt Date: 20111201
  Transmission Date: 20120403
  Serious: Yes (Life-Threatening)
  Sender: FDA-Public Use
  Company Number: NL-ROXANE LABORATORIES, INC.-2011-RO-01726RO

PATIENT
  Age: 69 Year
  Sex: Female
  Weight: 84 kg

DRUGS (8)
  1. PIPERACILLIN AND TAZOBACTAM [Suspect]
     Dosage: 4500 MG
  2. FLUCONAZOLE [Suspect]
     Route: 042
  3. ESOMEPRAZOLE SODIUM [Suspect]
     Dosage: 40 MG
  4. SEVOFLURANE [Suspect]
     Indication: MAINTENANCE OF ANAESTHESIA
     Route: 055
  5. ACETAMINOPHEN [Suspect]
     Dosage: 1000 MG
     Route: 048
  6. PROPOFOL [Suspect]
     Indication: INDUCTION OF ANAESTHESIA
  7. SUFENTANIL CITRATE [Suspect]
     Indication: INDUCTION OF ANAESTHESIA
  8. AMLODIPINE [Suspect]
     Dosage: 5 MG

REACTIONS (1)
  - TORSADE DE POINTES [None]
